FAERS Safety Report 7715744-3 (Version None)
Quarter: 2011Q3

REPORT INFORMATION
  Report Type: 
  Country: None (occurrence: None)
  Receive Date: 20110829
  Receipt Date: 20110823
  Transmission Date: 20111222
  Serious: Yes (Hospitalization, Other)
  Sender: FDA-Public Use
  Company Number: US-PFIZER INC-2011073077

PATIENT
  Sex: Male

DRUGS (3)
  1. RITALIN [Concomitant]
     Indication: ATTENTION DEFICIT/HYPERACTIVITY DISORDER
     Dosage: UNK
     Dates: start: 19910101
  2. CHANTIX [Suspect]
     Indication: SMOKING CESSATION THERAPY
     Dosage: 0.5 MG AND 1 MG
     Dates: start: 20090331, end: 20090531
  3. GEODON [Concomitant]
     Indication: SCHIZOPHRENIA
     Dosage: UNK
     Dates: start: 20030101

REACTIONS (10)
  - VISION BLURRED [None]
  - MARITAL PROBLEM [None]
  - SUICIDE ATTEMPT [None]
  - INTENTIONAL OVERDOSE [None]
  - SCHIZOAFFECTIVE DISORDER [None]
  - ANXIETY [None]
  - DEPRESSION [None]
  - AGGRESSION [None]
  - AMNESIA [None]
  - MENTAL DISORDER [None]
